FAERS Safety Report 10417877 (Version 1)
Quarter: 2014Q3

REPORT INFORMATION
  Report Type: Spontaneous
  Country: US (occurrence: None)
  Receive Date: 20140828
  Receipt Date: 20140828
  Transmission Date: 20150326
  Serious: No
  Sender: FDA-Public Use
  Company Number: None

PATIENT
  Age: 67 Year
  Sex: Female

DRUGS (1)
  1. STIVARGA [Suspect]
     Active Substance: REGORAFENIB
     Indication: COLON CANCER
     Route: 048
     Dates: start: 20140528, end: 20140813

REACTIONS (4)
  - Diarrhoea [None]
  - Drug ineffective [None]
  - Palmar-plantar erythrodysaesthesia syndrome [None]
  - Nausea [None]

NARRATIVE: CASE EVENT DATE: 20140601
